FAERS Safety Report 4799885-9 (Version None)
Quarter: 2005Q4

REPORT INFORMATION
  Report Type: 
  Country: None (occurrence: None)
  Receive Date: 20051013
  Receipt Date: 20051007
  Transmission Date: 20060501
  Serious: Yes (Life-Threatening, Hospitalization)
  Sender: FDA-Public Use
  Company Number: HQWYE938110OCT05

PATIENT
  Age: 51 Year
  Sex: Male

DRUGS (3)
  1. EFFEXOR XR [Suspect]
     Dosage: SEE IMAGE
     Route: 048
     Dates: start: 20020401, end: 20050401
  2. EFFEXOR XR [Suspect]
     Dosage: SEE IMAGE
     Route: 048
     Dates: start: 20050401
  3. MOCLOBEMIDE (MOCLOBEMIDE,) [Suspect]
     Dosage: TWO OR THREE 300MG TABLETS ORAL
     Route: 048
     Dates: start: 20050407, end: 20050407

REACTIONS (4)
  - CIRCULATORY COLLAPSE [None]
  - CLONUS [None]
  - DRUG INTERACTION [None]
  - HYPOXIA [None]
